FAERS Safety Report 7381370-1 (Version None)
Quarter: 2011Q1

REPORT INFORMATION
  Report Type: 
  Country: None (occurrence: None)
  Receive Date: 20110321
  Receipt Date: 20110308
  Transmission Date: 20110831
  Serious: Yes (Other)
  Sender: FDA-Public Use
  Company Number: 028131

PATIENT
  Sex: Female

DRUGS (2)
  1. ARAVA [Concomitant]
  2. CIMZIA [Suspect]
     Dosage: RECEIVED ONLY FIRST INJECTION, SUBCUTANEOUS
     Route: 058

REACTIONS (2)
  - HYPERSENSITIVITY [None]
  - FACE OEDEMA [None]
